FAERS Safety Report 23553231 (Version 1)
Quarter: 2024Q1

REPORT INFORMATION
  Report Type: Spontaneous
  Country: RU (occurrence: RU)
  Receive Date: 20240222
  Receipt Date: 20240222
  Transmission Date: 20240410
  Serious: Yes (Hospitalization)
  Sender: FDA-Public Use
  Company Number: RU-AstraZeneca-2024-141260

PATIENT
  Sex: Male

DRUGS (1)
  1. TRASTUZUMAB DERUXTECAN [Suspect]
     Active Substance: TRASTUZUMAB DERUXTECAN
     Indication: HER2 positive colorectal cancer
     Dosage: 5.4 MG/KG
     Route: 041
     Dates: start: 20240209, end: 20240213

REACTIONS (4)
  - Pulmonary oedema [Recovered/Resolved]
  - Diarrhoea [Not Recovered/Not Resolved]
  - Pneumonitis [Unknown]
  - Off label use [Unknown]
